FAERS Safety Report 5415647-3 (Version None)
Quarter: 2007Q3

REPORT INFORMATION
  Report Type: 
  Country: None (occurrence: None)
  Receive Date: 20070815
  Receipt Date: 20070810
  Transmission Date: 20080115
  Serious: Yes (Other)
  Sender: FDA-Public Use
  Company Number: NLWYE930428JUN07

PATIENT
  Age: 58 Year
  Sex: Female
  Weight: 66 kg

DRUGS (5)
  1. RAPAMUNE [Suspect]
     Indication: RENAL TRANSPLANT
     Route: 048
     Dates: start: 20070122, end: 20070205
  2. VALCYTE [Concomitant]
     Indication: PROPHYLAXIS
  3. COTRIMOX [Concomitant]
     Indication: PROPHYLAXIS
  4. PREDNISOLONE [Concomitant]
     Indication: RENAL TRANSPLANT
  5. CELLCEPT [Concomitant]
     Indication: RENAL TRANSPLANT

REACTIONS (4)
  - CYSTITIS INTERSTITIAL [None]
  - GINGIVITIS [None]
  - ORAL PAIN [None]
  - VAGINAL INFECTION [None]
